FAERS Safety Report 9452284 (Version 1)
Quarter: 2013Q3

REPORT INFORMATION
  Report Type: Spontaneous
  Country: US (occurrence: None)
  Receive Date: 20130808
  Receipt Date: 20130808
  Transmission Date: 20140515
  Serious: No
  Sender: FDA-Public Use
  Company Number: None

PATIENT
  Age: 60 Year
  Sex: Female
  Weight: 66.23 kg

DRUGS (4)
  1. LEADER GENERAL PROTECTION SPF 70 [Suspect]
     Indication: PROPHYLAXIS
     Dosage: COUPLE OF DAYS
     Route: 061
     Dates: start: 20130706, end: 20130707
  2. LEADER GENERAL PROTECTION SPF 70 [Suspect]
     Indication: SUNBURN
     Dosage: COUPLE OF DAYS
     Route: 061
     Dates: start: 20130706, end: 20130707
  3. FISH OIL [Concomitant]
  4. MULTI-VITAMIN [Concomitant]

REACTIONS (2)
  - Skin disorder [None]
  - Skin exfoliation [None]
